FAERS Safety Report 12913564 (Version 4)
Quarter: 2017Q2

REPORT INFORMATION
  Report Type: Report from Study
  Country: None (occurrence: US)
  Receive Date: 20161104
  Receipt Date: 20170630
  Transmission Date: 20170830
  Serious: Yes (Hospitalization, Other)
  Sender: FDA-Public Use
  Company Number: US-ABBVIE-16K-163-1772141-00

PATIENT
  Age: 42 Year
  Sex: Female

DRUGS (9)
  1. HUMIRA [Suspect]
     Active Substance: ADALIMUMAB
     Indication: CROHN^S DISEASE
     Route: 058
  2. PREDNISONE. [Concomitant]
     Active Substance: PREDNISONE
     Indication: PRODUCT USED FOR UNKNOWN INDICATION
  3. IRON [Concomitant]
     Active Substance: IRON
     Indication: ANAEMIA
  4. TRAMADOL. [Concomitant]
     Active Substance: TRAMADOL
     Indication: PAIN
  5. GABAPENTIN. [Concomitant]
     Active Substance: GABAPENTIN
     Indication: PAIN
  6. COLESTIPOL [Concomitant]
     Active Substance: COLESTIPOL
     Indication: FREQUENT BOWEL MOVEMENTS
  7. HUMIRA [Suspect]
     Active Substance: ADALIMUMAB
     Route: 058
     Dates: end: 20170309
  8. POTASSIUM [Concomitant]
     Active Substance: POTASSIUM
     Indication: PRODUCT USED FOR UNKNOWN INDICATION
  9. VITAMIN C [Concomitant]
     Active Substance: ASCORBIC ACID
     Indication: PRODUCT USED FOR UNKNOWN INDICATION

REACTIONS (35)
  - Musculoskeletal stiffness [Not Recovered/Not Resolved]
  - Rash macular [Unknown]
  - Impaired healing [Unknown]
  - Uterine enlargement [Not Recovered/Not Resolved]
  - Post procedural complication [Unknown]
  - Amnesia [Recovering/Resolving]
  - Pharyngitis [Not Recovered/Not Resolved]
  - Back pain [Not Recovered/Not Resolved]
  - Food intolerance [Unknown]
  - Wound complication [Unknown]
  - Vomiting [Unknown]
  - Muscle spasms [Unknown]
  - Gastrointestinal fistula [Recovered/Resolved]
  - Menorrhagia [Not Recovered/Not Resolved]
  - Dysstasia [Not Recovered/Not Resolved]
  - Middle insomnia [Not Recovered/Not Resolved]
  - Insomnia [Unknown]
  - Uterine polyp [Recovered/Resolved]
  - Frequent bowel movements [Unknown]
  - Dyspepsia [Unknown]
  - Pain [Unknown]
  - Post procedural complication [Unknown]
  - Drain placement [Unknown]
  - Abdominal infection [Recovered/Resolved]
  - Sleep apnoea syndrome [Unknown]
  - Fatigue [Unknown]
  - Dysmenorrhoea [Not Recovered/Not Resolved]
  - Incisional hernia [Not Recovered/Not Resolved]
  - Intervertebral disc degeneration [Unknown]
  - Intra-abdominal fluid collection [Unknown]
  - Confusional state [Recovering/Resolving]
  - Nausea [Unknown]
  - Ear pain [Not Recovered/Not Resolved]
  - Bone cyst [Unknown]
  - Crohn^s disease [Unknown]

NARRATIVE: CASE EVENT DATE: 2014
